FAERS Safety Report 7536729-6 (Version None)
Quarter: 2011Q2

REPORT INFORMATION
  Report Type: 
  Country: None (occurrence: None)
  Receive Date: 20110609
  Receipt Date: 20110526
  Transmission Date: 20111010
  Serious: Yes (Other)
  Sender: FDA-Public Use
  Company Number: B0724700A

PATIENT
  Age: 57 Year

DRUGS (10)
  1. CLOPIDOGREL [Concomitant]
  2. ASPIRIN [Concomitant]
  3. COUMADIN [Concomitant]
  4. LOSARTAN POTASSIUM [Concomitant]
  5. METOPROLOL SUCCINATE [Concomitant]
  6. AMLODIPINE [Concomitant]
  7. METFORMIN HYDROCHLORIDE [Concomitant]
  8. OMEPRAZOLE [Concomitant]
  9. ROSUVASTATIN CALCIUM [Concomitant]
  10. PROPAFENONE HCL [Suspect]
     Route: 065
     Dates: start: 20100713

REACTIONS (4)
  - INTERNATIONAL NORMALISED RATIO ABNORMAL [None]
  - ATRIAL FLUTTER [None]
  - PROTHROMBIN TIME ABNORMAL [None]
  - ATRIAL THROMBOSIS [None]
